FAERS Safety Report 25622780 (Version 1)
Quarter: 2025Q3

REPORT INFORMATION
  Report Type: Report from Study
  Country: EU (occurrence: EU)
  Receive Date: 20250730
  Receipt Date: 20250730
  Transmission Date: 20251020
  Serious: Yes (Hospitalization)
  Sender: EISAI
  Company Number: EU-Eisai-EC-2025-193918

PATIENT
  Age: 60 Year
  Sex: Female

DRUGS (2)
  1. LENVIMA [Suspect]
     Active Substance: LENVATINIB
     Indication: Endometrial cancer
     Dates: end: 2025
  2. PEMBROLIZUMAB [Suspect]
     Active Substance: PEMBROLIZUMAB
     Indication: Endometrial cancer

REACTIONS (1)
  - Female genital tract fistula [Recovered/Resolved]

NARRATIVE: CASE EVENT DATE: 20250501
